FAERS Safety Report 6241965-5 (Version None)
Quarter: 2009Q2

REPORT INFORMATION
  Report Type: 
  Country: None (occurrence: None)
  Receive Date: 20090622
  Receipt Date: 20090618
  Transmission Date: 20091009
  Serious: Yes (Hospitalization, Other)
  Sender: FDA-Public Use
  Company Number: CERZ-1000639

PATIENT
  Age: 60 Year
  Sex: Male

DRUGS (1)
  1. CEREZYME [Suspect]
     Indication: GAUCHER'S DISEASE
     Dates: start: 19980714

REACTIONS (8)
  - BLOOD IMMUNOGLOBULIN G [None]
  - DIARRHOEA [None]
  - EYELID OEDEMA [None]
  - INFUSION RELATED REACTION [None]
  - NAUSEA [None]
  - PROSTATE CANCER [None]
  - PRURITUS [None]
  - URTICARIA [None]
